FAERS Safety Report 10039706 (Version 1)
Quarter: 2014Q1

REPORT INFORMATION
  Report Type: Spontaneous
  Country: US (occurrence: US)
  Receive Date: 20140326
  Receipt Date: 20140326
  Transmission Date: 20141002
  Serious: No
  Sender: FDA-Public Use
  Company Number: US-JNJFOC-20140216076

PATIENT
  Age: 19 Year
  Sex: Female
  Weight: 58.97 kg

DRUGS (7)
  1. INVEGA [Suspect]
     Indication: SCHIZOAFFECTIVE DISORDER
     Route: 048
     Dates: start: 201402
  2. INVEGA [Suspect]
     Indication: SCHIZOAFFECTIVE DISORDER
     Route: 048
     Dates: start: 201402
  3. LITHIUM [Concomitant]
  4. LEVOTHYROXINE [Concomitant]
     Route: 065
  5. COGENTIN [Concomitant]
     Route: 065
  6. EFFEXOR [Concomitant]
     Route: 065
  7. TRAZODONE [Concomitant]
     Route: 065

REACTIONS (3)
  - Menorrhagia [Not Recovered/Not Resolved]
  - Polymenorrhoea [Not Recovered/Not Resolved]
  - Dark circles under eyes [Not Recovered/Not Resolved]
